FAERS Safety Report 14663423 (Version 6)
Quarter: 2023Q4

REPORT INFORMATION
  Report Type: Spontaneous
  Country: US (occurrence: US)
  Receive Date: 20180321
  Receipt Date: 20231025
  Transmission Date: 20240110
  Serious: No
  Sender: FDA-Public Use
  Company Number: US-PFIZER INC-2018112450

PATIENT
  Age: 67 Year
  Sex: Female

DRUGS (2)
  1. XELJANZ [Suspect]
     Active Substance: TOFACITINIB CITRATE
     Indication: Rheumatoid arthritis
     Dosage: 5 MG, 2X/DAY
     Route: 048
  2. XELJANZ [Suspect]
     Active Substance: TOFACITINIB CITRATE
     Dosage: 5 MG, 1X/DAY
     Route: 048

REACTIONS (3)
  - Hypersensitivity [Unknown]
  - Sinus disorder [Unknown]
  - Off label use [Unknown]
